FAERS Safety Report 8096040-4 (Version None)
Quarter: 2012Q1

REPORT INFORMATION
  Report Type: 
  Country: None (occurrence: None)
  Receive Date: 20120129
  Receipt Date: 20111215
  Transmission Date: 20120608
  Serious: No
  Sender: FDA-Public Use
  Company Number: US-ABBOTT-11P-163-0883693-00

PATIENT
  Age: 49 Year
  Sex: Male

DRUGS (9)
  1. XANAX [Concomitant]
     Indication: DEPRESSION
  2. XANAX [Concomitant]
     Indication: ANXIETY
  3. IMURAN [Concomitant]
     Indication: DRUG THERAPY
  4. WELLBUTRIN [Concomitant]
     Indication: DEPRESSION
  5. HUMIRA [Suspect]
     Indication: CROHN'S DISEASE
     Dates: start: 20111020
  6. LIBRAX [Concomitant]
     Indication: DRUG THERAPY
     Dosage: 5/2.5MG
  7. PROZAC [Concomitant]
     Indication: DEPRESSION
  8. PROZAC [Concomitant]
     Indication: ANXIETY
  9. BUSPAR [Concomitant]
     Indication: DRUG THERAPY

REACTIONS (2)
  - GASTROINTESTINAL PAIN [None]
  - STRESS [None]
